FAERS Safety Report 5484049-6 (Version None)
Quarter: 2007Q4

REPORT INFORMATION
  Report Type: 
  Country: None (occurrence: None)
  Receive Date: 20071009
  Receipt Date: 20071009
  Transmission Date: 20080405
  Serious: No
  Sender: FDA-Public Use
  Company Number: None

PATIENT
  Age: 71 Year
  Sex: Male

DRUGS (1)
  1. MORPHINE [Suspect]
     Indication: PAIN PROPHYLAXIS
     Dosage: 4MG ONCE IV
     Route: 042
     Dates: start: 20070620, end: 20070620

REACTIONS (2)
  - RESPIRATORY DEPRESSION [None]
  - UNRESPONSIVE TO STIMULI [None]
